FAERS Safety Report 24736071 (Version 1)
Quarter: 2024Q4

REPORT INFORMATION
  Report Type: Spontaneous
  Country: PT (occurrence: PT)
  Receive Date: 20241216
  Receipt Date: 20241216
  Transmission Date: 20250114
  Serious: Yes (Life-Threatening, Hospitalization, Other)
  Sender: EPIC PHARM
  Company Number: PT-EPICPHARMA-PT-2024EPCLIT01561

PATIENT
  Age: 4 Year
  Sex: Male

DRUGS (5)
  1. ETHOSUXIMIDE [Suspect]
     Active Substance: ETHOSUXIMIDE
     Indication: Epilepsy
     Route: 065
  2. VALPROATE SODIUM [Concomitant]
     Active Substance: VALPROATE SODIUM
     Route: 065
  3. CLONAZEPAM [Concomitant]
     Active Substance: CLONAZEPAM
     Route: 065
  4. CLONAZEPAM [Concomitant]
     Active Substance: CLONAZEPAM
     Route: 065
  5. LEVETIRACETAM [Concomitant]
     Active Substance: LEVETIRACETAM
     Route: 065

REACTIONS (2)
  - SJS-TEN overlap [Recovering/Resolving]
  - Product use in unapproved indication [Unknown]
